FAERS Safety Report 5217709-2 (Version None)
Quarter: 2007Q1

REPORT INFORMATION
  Report Type: 
  Country: None (occurrence: None)
  Receive Date: 20070119
  Receipt Date: 20070110
  Transmission Date: 20070707
  Serious: Yes (Other)
  Sender: FDA-Public Use
  Company Number: GBWYE092510JAN07

PATIENT
  Age: 40 Year
  Sex: Female

DRUGS (1)
  1. EFFEXOR XR [Suspect]
     Dosage: 225 MG 1X PER 1 DAY; ^ SOME TIME ^

REACTIONS (3)
  - DRUG WITHDRAWAL SYNDROME [None]
  - HEPATOMEGALY [None]
  - OEDEMA PERIPHERAL [None]
